FAERS Safety Report 25210979 (Version 1)
Quarter: 2025Q2

REPORT INFORMATION
  Report Type: Spontaneous
  Country: US (occurrence: US)
  Receive Date: 20250417
  Receipt Date: 20250417
  Transmission Date: 20250716
  Serious: Yes (Other)
  Sender: NOVARTIS
  Company Number: US-002147023-NVSC2025US061966

PATIENT
  Sex: Female

DRUGS (2)
  1. ALOMIDE [Suspect]
     Active Substance: LODOXAMIDE TROMETHAMINE
     Indication: Hypersensitivity
     Route: 065
  2. ALOMIDE [Suspect]
     Active Substance: LODOXAMIDE TROMETHAMINE
     Indication: Inflammation

REACTIONS (13)
  - Thermal burns of eye [Unknown]
  - Drug hypersensitivity [Unknown]
  - Headache [Unknown]
  - Lacrimation increased [Unknown]
  - Hypersensitivity [Unknown]
  - Inflammation [Unknown]
  - Eye disorder [Unknown]
  - Eye swelling [Unknown]
  - Ocular hyperaemia [Unknown]
  - Eye injury [Unknown]
  - Product availability issue [Unknown]
  - Inappropriate schedule of product discontinuation [Unknown]
  - Drug ineffective [Unknown]
